FAERS Safety Report 4331038-0 (Version None)
Quarter: 2004Q1

REPORT INFORMATION
  Report Type: 
  Country: None (occurrence: None)
  Receive Date: 20040331
  Receipt Date: 20040318
  Transmission Date: 20041129
  Serious: Yes (Hospitalization, Other)
  Sender: FDA-Public Use
  Company Number: 2004019116

PATIENT
  Age: 44 Year
  Sex: Female

DRUGS (2)
  1. GEODON [Suspect]
     Indication: ILL-DEFINED DISORDER
     Dosage: 120 MG (DAILY), ORAL
     Route: 048
     Dates: end: 20040301
  2. ZOLOFT [Suspect]
     Indication: ILL-DEFINED DISORDER
     Dosage: 50 MG (DAILY), ORAL
     Route: 048

REACTIONS (3)
  - GRAND MAL CONVULSION [None]
  - HYPONATRAEMIA [None]
  - POLYDIPSIA [None]
